FAERS Safety Report 8421256-4 (Version None)
Quarter: 2012Q2

REPORT INFORMATION
  Report Type: 
  Country: None (occurrence: None)
  Receive Date: 20120604
  Receipt Date: 20120604
  Transmission Date: 20120825
  Serious: Yes (Life-Threatening, Hospitalization, Disabling, Other)
  Sender: FDA-Public Use
  Company Number: None

PATIENT
  Age: 79 Year
  Sex: Male
  Weight: 92.3 kg

DRUGS (1)
  1. LISINOPRIL [Suspect]
     Indication: HYPERTENSION
     Dosage: 40 MG EVERY DAY PO
     Route: 048
     Dates: start: 19990301, end: 20120530

REACTIONS (6)
  - ANGIOEDEMA [None]
  - SWOLLEN TONGUE [None]
  - CARDIAC ARREST [None]
  - HYPOXIC-ISCHAEMIC ENCEPHALOPATHY [None]
  - CONVULSION [None]
  - RESPIRATORY ARREST [None]
